FAERS Safety Report 15819891 (Version 5)
Quarter: 2021Q3

REPORT INFORMATION
  Report Type: Spontaneous
  Country: US (occurrence: US)
  Receive Date: 20190114
  Receipt Date: 20210929
  Transmission Date: 20211014
  Serious: No
  Sender: FDA-Public Use
  Company Number: US-EMD SERONO-7086041

PATIENT
  Age: 49 Year
  Sex: Female

DRUGS (3)
  1. REBIF [Suspect]
     Active Substance: INTERFERON BETA-1A
     Dosage: REBIF PREFILLED SYRINGE
     Route: 058
     Dates: start: 20201212
  2. REBIF [Suspect]
     Active Substance: INTERFERON BETA-1A
     Dosage: MANUAL
     Route: 058
  3. REBIF [Suspect]
     Active Substance: INTERFERON BETA-1A
     Indication: MULTIPLE SCLEROSIS
     Dosage: REBIF PREFILLED SYRINGE.
     Route: 058
     Dates: start: 20070731, end: 20201118

REACTIONS (7)
  - Economic problem [Recovered/Resolved]
  - Muscle spasms [Unknown]
  - Treatment noncompliance [Recovered/Resolved]
  - Fall [Unknown]
  - Gait disturbance [Unknown]
  - Nystagmus [Not Recovered/Not Resolved]
  - Balance disorder [Unknown]

NARRATIVE: CASE EVENT DATE: 2011
